FAERS Safety Report 9962302 (Version 1)
Quarter: 2014Q1

REPORT INFORMATION
  Report Type: Report from Study
  Country: US (occurrence: US)
  Receive Date: 20140305
  Receipt Date: 20140305
  Transmission Date: 20141002
  Serious: No
  Sender: FDA-Public Use
  Company Number: US-ABBVIE-13P-163-1114220-00

PATIENT
  Sex: Male

DRUGS (4)
  1. HUMIRA [Suspect]
     Indication: COLITIS ULCERATIVE
     Dates: start: 201302
  2. LISINOPRIL [Concomitant]
     Indication: HYPERTENSION
  3. PERCOCET [Concomitant]
     Dosage: 5/325MG DAILY
  4. CYMBALTA [Concomitant]
     Indication: ARTHRITIS
     Dosage: 30MG DAILY

REACTIONS (1)
  - Injection site reaction [Not Recovered/Not Resolved]
